FAERS Safety Report 5310547-1 (Version None)
Quarter: 2007Q2

REPORT INFORMATION
  Report Type: 
  Country: None (occurrence: None)
  Receive Date: 20070427
  Receipt Date: 20070420
  Transmission Date: 20071010
  Serious: Yes (Other)
  Sender: FDA-Public Use
  Company Number: US-ABBOTT-07P-163-0365725-00

PATIENT
  Age: 28 Year
  Sex: Female

DRUGS (3)
  1. NORVIR [Suspect]
     Indication: SYSTEMIC ANTIVIRAL TREATMENT
     Route: 048
     Dates: start: 20070319
  2. SAQUINAVIR MESILATE [Suspect]
     Indication: SYSTEMIC ANTIVIRAL TREATMENT
     Route: 048
     Dates: start: 20070319
  3. ZIDOVUDINE W/LAMIVUDINE [Suspect]
     Indication: SYSTEMIC ANTIVIRAL TREATMENT
     Route: 048
     Dates: start: 20070319

REACTIONS (2)
  - ABORTION SPONTANEOUS COMPLETE [None]
  - DRUG EXPOSURE DURING PREGNANCY [None]
